FAERS Safety Report 8499880-2 (Version None)
Quarter: 2012Q3

REPORT INFORMATION
  Report Type: 
  Country: None (occurrence: None)
  Receive Date: 20120703
  Receipt Date: 20120703
  Transmission Date: 20120928
  Serious: No
  Sender: FDA-Public Use
  Company Number: None

PATIENT
  Sex: Female

DRUGS (1)
  1. BOTOX POWDER 1000 ALLERGAN [Suspect]
     Indication: DYSTONIA
     Dosage: IM IN NECK FOR NECK DISTONIA
     Route: 030

REACTIONS (3)
  - MYALGIA [None]
  - MOVEMENT DISORDER [None]
  - MUSCLE SPASMS [None]
